FAERS Safety Report 13393363 (Version 5)
Quarter: 2018Q1

REPORT INFORMATION
  Report Type: Spontaneous
  Country: JP (occurrence: JP)
  Receive Date: 20170331
  Receipt Date: 20180305
  Transmission Date: 20180508
  Serious: Yes (Hospitalization)
  Sender: FDA-Public Use
  Company Number: JP-009507513-1703JPN002649J

PATIENT
  Age: 81 Year
  Sex: Female
  Weight: 36 kg

DRUGS (1)
  1. KEYTRUDA [Suspect]
     Active Substance: PEMBROLIZUMAB
     Indication: LUNG ADENOCARCINOMA
     Dosage: 200 MG, Q3W
     Route: 041
     Dates: start: 20170316

REACTIONS (1)
  - Disuse syndrome [Recovered/Resolved]

NARRATIVE: CASE EVENT DATE: 20170325
